FAERS Safety Report 7674736-3 (Version None)
Quarter: 2011Q3

REPORT INFORMATION
  Report Type: 
  Country: None (occurrence: None)
  Receive Date: 20110810
  Receipt Date: 20110803
  Transmission Date: 20111222
  Serious: Yes (Disabling)
  Sender: FDA-Public Use
  Company Number: US-GLAXOSMITHKLINE-A0939534A

PATIENT
  Age: 30 Year
  Sex: Male

DRUGS (2)
  1. FLOVENT [Suspect]
     Indication: ASTHMA
     Route: 055
  2. FLONASE [Suspect]
     Indication: RHINITIS ALLERGIC
     Route: 045

REACTIONS (3)
  - DEPRESSED MOOD [None]
  - FATIGUE [None]
  - ASTHMA [None]
